FAERS Safety Report 9645990 (Version 3)
Quarter: 2014Q1

REPORT INFORMATION
  Report Type: Spontaneous
  Country: FR (occurrence: FR)
  Receive Date: 20131025
  Receipt Date: 20140221
  Transmission Date: 20141002
  Serious: Yes (Hospitalization)
  Sender: FDA-Public Use
  Company Number: FR-GLAXOSMITHKLINE-B0932274A

PATIENT
  Age: 64 Year
  Sex: Male

DRUGS (18)
  1. ARIXTRA [Suspect]
     Indication: PRODUCT USED FOR UNKNOWN INDICATION
     Dosage: 2.5MG PER DAY
     Route: 058
     Dates: end: 20130923
  2. KARDEGIC [Suspect]
     Indication: PRODUCT USED FOR UNKNOWN INDICATION
     Dosage: 75MG PER DAY
     Route: 048
     Dates: end: 20130924
  3. CALCIPARINE [Suspect]
     Indication: PRODUCT USED FOR UNKNOWN INDICATION
     Dosage: 5000IU TWICE PER DAY
     Route: 058
     Dates: start: 20130924
  4. CORDARONE [Concomitant]
     Dosage: 200MG SEE DOSAGE TEXT
     Route: 048
  5. DOMPERIDONE [Concomitant]
  6. IMOVANE [Concomitant]
  7. INIPOMP [Concomitant]
     Dosage: 40MG AT NIGHT
  8. LASILIX [Concomitant]
     Dosage: 500MG IN THE MORNING
  9. LOXAPAC [Concomitant]
     Dosage: 25MG SEE DOSAGE TEXT
  10. NEBIVOLOL [Concomitant]
     Dosage: .5UNIT AT NIGHT
  11. DAFALGAN [Concomitant]
     Dosage: 1TAB FOUR TIMES PER DAY
     Route: 048
  12. MOVICOL [Concomitant]
  13. MONOTILDIEM [Concomitant]
     Dosage: 10MG THREE TIMES PER DAY
  14. LEVEMIR [Concomitant]
     Dosage: 16IU PER DAY
  15. UMULINE [Concomitant]
     Dosage: 4IU THREE TIMES PER DAY
  16. NOVORAPID [Concomitant]
  17. ARANESP [Concomitant]
     Dosage: 1TAB WEEKLY
     Route: 048
  18. GLUCAGON [Concomitant]
     Dosage: 1INJ WEEKLY

REACTIONS (4)
  - Shock haemorrhagic [Recovered/Resolved]
  - Anaemia [Recovered/Resolved]
  - Haematemesis [Recovered/Resolved]
  - Drug interaction [Unknown]
